FAERS Safety Report 20875645 (Version 2)
Quarter: 2022Q2

REPORT INFORMATION
  Report Type: Spontaneous
  Country: RU (occurrence: RU)
  Receive Date: 20220526
  Receipt Date: 20220530
  Transmission Date: 20220721
  Serious: Yes (Other)
  Sender: FDA-Public Use
  Company Number: RU-NOVARTISPH-NVSC2022RU108942

PATIENT
  Age: 11 Year
  Sex: Female

DRUGS (12)
  1. METHOTREXATE [Suspect]
     Active Substance: METHOTREXATE
     Indication: Acute lymphocytic leukaemia
     Dosage: 5000 MG/M2, Q2W
     Route: 065
  2. PIPERACILLIN AND TAZOBACTAM [Concomitant]
     Active Substance: PIPERACILLIN SODIUM\TAZOBACTAM SODIUM
     Indication: Evidence based treatment
     Dosage: 90 MG/KG, Q8H
     Route: 065
  3. PIPERACILLIN AND TAZOBACTAM [Concomitant]
     Active Substance: PIPERACILLIN SODIUM\TAZOBACTAM SODIUM
     Indication: Antibiotic therapy
  4. AMIKACIN [Concomitant]
     Active Substance: AMIKACIN
     Indication: Evidence based treatment
     Dosage: 15 MG/KG, QD
     Route: 065
  5. AMIKACIN [Concomitant]
     Active Substance: AMIKACIN
     Indication: Antibiotic therapy
  6. VORICONAZOLE [Concomitant]
     Active Substance: VORICONAZOLE
     Indication: Antifungal prophylaxis
     Dosage: 8 MG/KG, QD (FOR THE ENTIRE PERIOD OF AGRANULOCYTOSIS)
     Route: 048
  7. VORICONAZOLE [Concomitant]
     Active Substance: VORICONAZOLE
     Dosage: 8 MG/KG, Q12H (FOR THE ENTIRE PERIOD OF AGRANULOCYTOSIS)
     Route: 048
  8. VANCOMYCIN [Concomitant]
     Active Substance: VANCOMYCIN
     Indication: Evidence based treatment
     Dosage: 40 MG/KG, QD
     Route: 065
  9. VANCOMYCIN [Concomitant]
     Active Substance: VANCOMYCIN
     Indication: Antibiotic therapy
  10. GRANULOCYTE COLONY-STIMULATING FACTOR NOS [Concomitant]
     Active Substance: GRANULOCYTE COLONY-STIMULATING FACTOR NOS
     Indication: Bone marrow failure
     Dosage: 5 UG/KG, QD
     Route: 065
  11. COLISTIN [Concomitant]
     Active Substance: COLISTIN
     Indication: Antibiotic therapy
     Dosage: 8 MG/KG, Q12H
     Route: 065
  12. COLISTIN [Concomitant]
     Active Substance: COLISTIN
     Indication: Pseudomonas infection

REACTIONS (2)
  - Generalised tonic-clonic seizure [Unknown]
  - Depressed level of consciousness [Unknown]
